FAERS Safety Report 6120363-9 (Version None)
Quarter: 2009Q1

REPORT INFORMATION
  Report Type: 
  Country: None (occurrence: None)
  Receive Date: 20090313
  Receipt Date: 20090313
  Transmission Date: 20090719
  Serious: Yes (Hospitalization)
  Sender: FDA-Public Use
  Company Number: None

PATIENT
  Sex: Female
  Weight: 60.2 kg

DRUGS (3)
  1. CARBOPLATIN [Suspect]
     Indication: TONSIL CANCER
     Dosage: AU6 Q5WKS
     Dates: start: 20090217
  2. TAXOL [Suspect]
     Indication: TONSIL CANCER
     Dosage: 100MG/M2 QWK
     Dates: start: 20090217
  3. CETUXIMAB [Suspect]
     Indication: TONSIL CANCER
     Dosage: 400MG/M2 X 1 250MG/M2 ORALLY
     Route: 048
     Dates: start: 20090217

REACTIONS (3)
  - ANXIETY [None]
  - DYSPNOEA [None]
  - TACHYCARDIA [None]
